FAERS Safety Report 6944411-9 (Version None)
Quarter: 2010Q3

REPORT INFORMATION
  Report Type: 
  Country: None (occurrence: None)
  Receive Date: 20100827
  Receipt Date: 20100819
  Transmission Date: 20110219
  Serious: Yes (Hospitalization)
  Sender: FDA-Public Use
  Company Number: JP-EISAI INC.-E2090-01269-SPO-JP

PATIENT
  Sex: Male

DRUGS (2)
  1. EXCEGRAN [Suspect]
     Dates: start: 20000630
  2. PRIMOBOLAN [Concomitant]
     Dates: start: 20100801

REACTIONS (2)
  - NORMOCHROMIC NORMOCYTIC ANAEMIA [None]
  - WHITE BLOOD CELL COUNT DECREASED [None]
